FAERS Safety Report 13563081 (Version 1)
Quarter: 2017Q2

REPORT INFORMATION
  Report Type: Spontaneous
  Country: US (occurrence: US)
  Receive Date: 20170518
  Receipt Date: 20170518
  Transmission Date: 20170830
  Serious: Yes (Hospitalization)
  Sender: FDA-Public Use
  Company Number: None

PATIENT
  Age: 58 Year
  Sex: Male

DRUGS (1)
  1. REVLIMID [Suspect]
     Active Substance: LENALIDOMIDE
     Indication: PLASMA CELL MYELOMA
     Route: 048
     Dates: start: 20170426

REACTIONS (7)
  - Subdural haematoma [None]
  - Pneumonia [None]
  - Head injury [None]
  - Mental impairment [None]
  - International normalised ratio increased [None]
  - Fatigue [None]
  - Syncope [None]

NARRATIVE: CASE EVENT DATE: 20170508
